FAERS Safety Report 10910136 (Version 1)
Quarter: 2015Q1

REPORT INFORMATION
  Report Type: Spontaneous
  Country: US (occurrence: US)
  Receive Date: 20150312
  Receipt Date: 20150312
  Transmission Date: 20150721
  Serious: No
  Sender: FDA-Public Use
  Company Number: US-SA-2014SA112585

PATIENT
  Sex: Male

DRUGS (2)
  1. NASACORT ALLERGY 24HR [Suspect]
     Active Substance: TRIAMCINOLONE ACETONIDE
     Indication: NASAL CONGESTION
     Dosage: 1 SPRAY PER NOSTRIL
     Route: 065
     Dates: start: 20140815
  2. NASACORT ALLERGY 24HR [Suspect]
     Active Substance: TRIAMCINOLONE ACETONIDE
     Indication: UPPER-AIRWAY COUGH SYNDROME
     Dosage: 1 SPRAY PER NOSTRIL
     Route: 065
     Dates: start: 20140815

REACTIONS (3)
  - Drug ineffective [Unknown]
  - Gastrooesophageal reflux disease [Unknown]
  - Insomnia [Unknown]
